FAERS Safety Report 4664099-X (Version None)
Quarter: 2005Q2

REPORT INFORMATION
  Report Type: 
  Country: None (occurrence: None)
  Receive Date: 20050510
  Receipt Date: 20050427
  Transmission Date: 20051028
  Serious: Yes (Hospitalization)
  Sender: FDA-Public Use
  Company Number: 2005-00811

PATIENT
  Age: 73 Year
  Sex: Female

DRUGS (1)
  1. IMMUCYST [Suspect]
     Indication: BLADDER CANCER
     Dosage: (81.0 MG) I.VES., BLADDER
     Route: 043
     Dates: start: 20050307, end: 20050411

REACTIONS (3)
  - HAEMORRHAGE [None]
  - HENOCH-SCHONLEIN PURPURA [None]
  - SKIN NECROSIS [None]
